FAERS Safety Report 18526809 (Version 1)
Quarter: 2020Q4

REPORT INFORMATION
  Report Type: Spontaneous
  Country: US (occurrence: US)
  Receive Date: 20201119
  Receipt Date: 20201119
  Transmission Date: 20210114
  Serious: No
  Sender: FDA-Public Use
  Company Number: None

PATIENT
  Age: 55 Year
  Sex: Female
  Weight: 77.11 kg

DRUGS (1)
  1. ENBREL [Suspect]
     Active Substance: ETANERCEPT
     Indication: PSORIASIS
     Dosage: TWO TIMES A WEEK 72-96 HOURS APART FOR 3 MONTHS AS DIRECTED
     Route: 058
     Dates: start: 202007

REACTIONS (5)
  - Fungal infection [None]
  - Blood urine present [None]
  - Psoriasis [None]
  - Urinary tract infection [None]
  - Infection [None]
